FAERS Safety Report 7623446-7 (Version None)
Quarter: 2011Q3

REPORT INFORMATION
  Report Type: 
  Country: None (occurrence: None)
  Receive Date: 20110720
  Receipt Date: 20110711
  Transmission Date: 20111222
  Serious: Yes (Other)
  Sender: FDA-Public Use
  Company Number: PHHY2011GB61606

PATIENT
  Age: 71 Year
  Sex: Male

DRUGS (3)
  1. MEROPENEM [Suspect]
     Route: 042
  2. VANCOMYCIN [Suspect]
  3. PIPERACILLIN AND TAZOBACTAM [Concomitant]
     Route: 042

REACTIONS (9)
  - HEPATIC FUNCTION ABNORMAL [None]
  - RASH ERYTHEMATOUS [None]
  - EOSINOPHILIA [None]
  - GENERALISED OEDEMA [None]
  - DRUG RASH WITH EOSINOPHILIA AND SYSTEMIC SYMPTOMS [None]
  - RASH MACULO-PAPULAR [None]
  - RENAL IMPAIRMENT [None]
  - MALAISE [None]
  - PYREXIA [None]
